FAERS Safety Report 24691020 (Version 1)
Quarter: 2024Q4

REPORT INFORMATION
  Report Type: Spontaneous
  Country: US (occurrence: US)
  Receive Date: 20241203
  Receipt Date: 20241203
  Transmission Date: 20250114
  Serious: No
  Sender: ROCHE
  Company Number: US-ROCHE-10000144342

PATIENT
  Sex: Female

DRUGS (1)
  1. ALECENSA [Suspect]
     Active Substance: ALECTINIB HYDROCHLORIDE
     Indication: Lung neoplasm malignant
     Route: 048
     Dates: start: 202405

REACTIONS (5)
  - Oedema peripheral [Unknown]
  - Peripheral swelling [Unknown]
  - Hot flush [Unknown]
  - Fatigue [Unknown]
  - Blood creatine increased [Unknown]
